FAERS Safety Report 20472737 (Version 1)
Quarter: 2022Q1

REPORT INFORMATION
  Report Type: Report from Study
  Country: US (occurrence: US)
  Receive Date: 20220215
  Receipt Date: 20220215
  Transmission Date: 20220423
  Serious: Yes (Other)
  Sender: FDA-Public Use
  Company Number: US-TEVA-2017-US-838500

PATIENT
  Age: 93 Year
  Sex: Male

DRUGS (4)
  1. AUSTEDO [Suspect]
     Active Substance: DEUTETRABENAZINE
     Indication: Tardive dyskinesia
     Dosage: 12 MILLIGRAM DAILY;
     Route: 065
     Dates: start: 20171016
  2. AUSTEDO [Suspect]
     Active Substance: DEUTETRABENAZINE
     Dosage: 6 MILLIGRAM DAILY; ADMINISTERING HALF OF A 12MG TABLET DAILY. DATE OF ADMIN: 2 TO 3 WEEKS AGO
     Route: 065
     Dates: start: 201711
  3. AUSTEDO [Suspect]
     Active Substance: DEUTETRABENAZINE
     Dosage: 12 MILLIGRAM DAILY;
     Route: 065
  4. AUSTEDO [Suspect]
     Active Substance: DEUTETRABENAZINE
     Dosage: 6 MILLIGRAM DAILY;
     Route: 065

REACTIONS (5)
  - Hallucination [Unknown]
  - Abnormal dreams [Recovering/Resolving]
  - Sleep talking [Recovering/Resolving]
  - Wrong technique in product usage process [Unknown]
  - Therapy change [Unknown]

NARRATIVE: CASE EVENT DATE: 20171101
